FAERS Safety Report 17490349 (Version 1)
Quarter: 2020Q1

REPORT INFORMATION
  Report Type: Spontaneous
  Country: US (occurrence: US)
  Receive Date: 20200303
  Receipt Date: 20200303
  Transmission Date: 20200409
  Serious: No
  Sender: FDA-Public Use
  Company Number: US-AKORN PHARMACEUTICALS-2019AKN01060

PATIENT
  Sex: Female
  Weight: 70.3 kg

DRUGS (4)
  1. ATENOLOL. [Concomitant]
     Active Substance: ATENOLOL
  2. MYORISAN [Suspect]
     Active Substance: ISOTRETINOIN
     Indication: ACNE
     Dosage: 30 MG, 2X/DAY
     Route: 048
     Dates: start: 20190314, end: 20190422
  3. VITAMIN D [Concomitant]
     Active Substance: VITAMIN D NOS
  4. XANAX [Concomitant]
     Active Substance: ALPRAZOLAM
     Dosage: UNK, AS NEEDED

REACTIONS (2)
  - Arthralgia [Recovering/Resolving]
  - Back pain [Recovering/Resolving]

NARRATIVE: CASE EVENT DATE: 2019
